FAERS Safety Report 14433524 (Version 1)
Quarter: 2018Q1

REPORT INFORMATION
  Report Type: Spontaneous
  Country: US (occurrence: US)
  Receive Date: 20180124
  Receipt Date: 20180124
  Transmission Date: 20180509
  Serious: Yes (Hospitalization)
  Sender: FDA-Public Use
  Company Number: US-PCCINC-T201702245

PATIENT

DRUGS (3)
  1. GABLOFEN [Suspect]
     Active Substance: BACLOFEN
     Indication: MUSCLE SPASTICITY
     Dosage: 555 ?G, QD
     Route: 037
     Dates: end: 20170518
  2. GABLOFEN [Suspect]
     Active Substance: BACLOFEN
     Dosage: 450 ?G, QD
     Route: 037
     Dates: start: 20170518, end: 20170519
  3. GABLOFEN [Suspect]
     Active Substance: BACLOFEN
     Dosage: 275 ?G, QD
     Route: 037
     Dates: start: 20170519

REACTIONS (3)
  - Hypotonia [Recovering/Resolving]
  - Overdose [Recovering/Resolving]
  - Device issue [Unknown]

NARRATIVE: CASE EVENT DATE: 20170518
